FAERS Safety Report 14317781 (Version 1)
Quarter: 2017Q4

REPORT INFORMATION
  Report Type: Spontaneous
  Country: SE (occurrence: SE)
  Receive Date: 20171222
  Receipt Date: 20171222
  Transmission Date: 20180321
  Serious: Yes (Other)
  Sender: FDA-Public Use
  Company Number: SE-PFIZER INC-2017543054

PATIENT
  Age: 77 Year
  Sex: Female

DRUGS (6)
  1. PANTOPRAZOLE [Suspect]
     Active Substance: PANTOPRAZOLE
     Indication: GASTRITIS
     Dosage: 20 MG, QD
     Route: 048
     Dates: start: 201711, end: 201711
  2. ELIQUIS [Concomitant]
     Active Substance: APIXABAN
     Dosage: UNK
  3. ALVEDON [Concomitant]
     Active Substance: ACETAMINOPHEN
     Dosage: UNK
  4. CANDESARTAN ACTAVIS [Concomitant]
     Active Substance: CANDESARTAN
     Dosage: UNK
  5. ATORBIR [Concomitant]
     Active Substance: ATORVASTATIN
     Dosage: UNK
  6. PANTOPRAZOLE [Suspect]
     Active Substance: PANTOPRAZOLE
     Indication: COUGH
     Dosage: UNK
     Route: 065

REACTIONS (2)
  - Hypotension [Recovered/Resolved]
  - Product use in unapproved indication [Unknown]

NARRATIVE: CASE EVENT DATE: 20171116
